FAERS Safety Report 4915771-5 (Version None)
Quarter: 2006Q1

REPORT INFORMATION
  Report Type: 
  Country: None (occurrence: None)
  Receive Date: 20060214
  Receipt Date: 20060125
  Transmission Date: 20060701
  Serious: Yes (Hospitalization)
  Sender: FDA-Public Use
  Company Number: US200601004355

PATIENT
  Age: 76 Year
  Sex: Female

DRUGS (2)
  1. HUMALOG [Suspect]
     Dosage: 2/D
  2. HUMULIN N [Suspect]
     Indication: DIABETES MELLITUS
     Dosage: 50 U EACH MORNING

REACTIONS (10)
  - BALANCE DISORDER [None]
  - EAR INFECTION VIRAL [None]
  - FALL [None]
  - HISTOPLASMOSIS [None]
  - INNER EAR DISORDER [None]
  - JOINT DISLOCATION [None]
  - MOUTH INJURY [None]
  - PHARMACEUTICAL PRODUCT COMPLAINT [None]
  - ROTATOR CUFF SYNDROME [None]
  - UPPER LIMB FRACTURE [None]
